FAERS Safety Report 6346783-5 (Version None)
Quarter: 2009Q3

REPORT INFORMATION
  Report Type: 
  Country: None (occurrence: None)
  Receive Date: 20090910
  Receipt Date: 20090828
  Transmission Date: 20100115
  Serious: Yes (Hospitalization)
  Sender: FDA-Public Use
  Company Number: GB-RANBAXY-2009RR-27657

PATIENT
  Sex: Male

DRUGS (5)
  1. RAMIPRIL [Suspect]
     Dosage: 10 MG, UNK
     Route: 048
  2. FUROSEMIDE [Suspect]
     Dosage: 40 MG, UNK
     Route: 048
  3. AMLODIPINE [Concomitant]
     Dosage: 5 MG, UNK
     Route: 048
  4. ATENOLOL [Concomitant]
     Dosage: 25 MG, UNK
     Route: 048
  5. SPIRONOLACTONE [Concomitant]
     Dosage: 25 MG, UNK
     Route: 048

REACTIONS (1)
  - RENAL FAILURE ACUTE [None]
